APPROVED DRUG PRODUCT: GABAPENTIN
Active Ingredient: GABAPENTIN
Strength: 450MG
Dosage Form/Route: TABLET;ORAL
Application: A203934 | Product #003 | TE Code: AB
Applicant: ZYDUS PHARMACEUTICALS USA INC
Approved: Aug 25, 2025 | RLD: No | RS: No | Type: RX